FAERS Safety Report 5829015-3 (Version None)
Quarter: 2008Q3

REPORT INFORMATION
  Report Type: 
  Country: None (occurrence: None)
  Receive Date: 20080731
  Receipt Date: 20080728
  Transmission Date: 20090109
  Serious: Yes (Life-Threatening, Hospitalization, Other)
  Sender: FDA-Public Use
  Company Number: PHFR2007GB03716

PATIENT
  Age: 75 Year
  Sex: Female
  Weight: 68 kg

DRUGS (3)
  1. DICLOFENAC SODIUM [Suspect]
     Indication: OSTEOARTHRITIS
     Dosage: 15 MG, BID
     Route: 048
     Dates: start: 20071010, end: 20071021
  2. IBUPROFEN [Concomitant]
     Indication: OSTEOARTHRITIS
     Dosage: 400 MG, UNK
     Route: 048
     Dates: start: 20070907, end: 20071001
  3. PARACETAMOL [Concomitant]
     Dosage: 500 MG, UNK
     Route: 048

REACTIONS (13)
  - ABDOMINAL PAIN [None]
  - APHASIA [None]
  - BLINDNESS [None]
  - DIAPHRAGMALGIA [None]
  - DUODENAL ULCER PERFORATION [None]
  - FATIGUE [None]
  - OXYGEN SUPPLEMENTATION [None]
  - PALPITATIONS [None]
  - PERITONITIS [None]
  - PNEUMONIA [None]
  - SURGERY [None]
  - VISION BLURRED [None]
  - VISUAL IMPAIRMENT [None]
